FAERS Safety Report 6978193-1 (Version None)
Quarter: 2010Q3

REPORT INFORMATION
  Report Type: 
  Country: None (occurrence: None)
  Receive Date: 20100913
  Receipt Date: 20100907
  Transmission Date: 20110219
  Serious: Yes (Death)
  Sender: FDA-Public Use
  Company Number: PHHY2010US54476

PATIENT
  Sex: Female

DRUGS (2)
  1. FEMARA [Suspect]
     Dosage: 2.5 MG, QD
     Route: 048
  2. HORMONAL THERAPY [Concomitant]

REACTIONS (2)
  - ENDOMETRIAL CANCER METASTATIC [None]
  - MALIGNANT NEOPLASM PROGRESSION [None]
